FAERS Safety Report 16994340 (Version 1)
Quarter: 2019Q4

REPORT INFORMATION
  Report Type: Spontaneous
  Country: US (occurrence: US)
  Receive Date: 20191105
  Receipt Date: 20191105
  Transmission Date: 20200122
  Serious: Yes (Other)
  Sender: FDA-Public Use
  Company Number: US-TARO PHARMACEUTICALS USA.,INC-2019SUN00588

PATIENT
  Age: 13 Month
  Sex: Male

DRUGS (2)
  1. ACETAMINOPHEN. [Suspect]
     Active Substance: ACETAMINOPHEN
     Indication: STRIDOR
  2. ACETAMINOPHEN. [Suspect]
     Active Substance: ACETAMINOPHEN
     Indication: PYREXIA
     Dosage: 3 DOSE, (THREE DOSES OF ACETAMINOPHEN AT HOME OVER 3 DAYS)
     Route: 065

REACTIONS (2)
  - Toxicity to various agents [Recovering/Resolving]
  - Hepatic failure [Recovering/Resolving]
